FAERS Safety Report 7462339-5 (Version None)
Quarter: 2011Q2

REPORT INFORMATION
  Report Type: 
  Country: None (occurrence: None)
  Receive Date: 20110506
  Receipt Date: 20110502
  Transmission Date: 20111010
  Serious: Yes (Hospitalization, Other)
  Sender: FDA-Public Use
  Company Number: BR-PFIZER INC-2011093888

PATIENT
  Age: 34 Year
  Sex: Female

DRUGS (5)
  1. PREDNISONE [Concomitant]
     Dosage: UNK
  2. PURAN T4 [Concomitant]
     Dosage: 75 MG, UNK
  3. DEPO-PROVERA [Suspect]
     Dosage: 150 MG, EVERY 3 MONTHS
     Route: 030
     Dates: start: 20080128
  4. AZATHIOPRINE [Concomitant]
     Dosage: 50 MG, UNK
  5. MAREVAN [Concomitant]
     Indication: BLOOD PRESSURE INCREASED
     Dosage: 5 MG, UNK

REACTIONS (3)
  - UNINTENDED PREGNANCY [None]
  - DRUG INEFFECTIVE [None]
  - ABORTION SPONTANEOUS [None]
